FAERS Safety Report 17528083 (Version 1)
Quarter: 2020Q1

REPORT INFORMATION
  Report Type: Spontaneous
  Country: US (occurrence: US)
  Receive Date: 20200311
  Receipt Date: 20200311
  Transmission Date: 20200409
  Serious: No
  Sender: FDA-Public Use
  Company Number: US-ASTRAZENECA-2020SE24873

PATIENT
  Sex: Female

DRUGS (1)
  1. SYMLINPEN [Suspect]
     Active Substance: PRAMLINTIDE ACETATE
     Dosage: THREE TIMES A DAY
     Route: 058

REACTIONS (3)
  - Malaise [Unknown]
  - Drug delivery system issue [Unknown]
  - Needle issue [Unknown]
